FAERS Safety Report 7061319-1 (Version None)
Quarter: 2010Q4

REPORT INFORMATION
  Report Type: 
  Country: None (occurrence: None)
  Receive Date: 20101026
  Receipt Date: 20101018
  Transmission Date: 20110411
  Serious: Yes (Other)
  Sender: FDA-Public Use
  Company Number: US-PERRIGO-10US014031

PATIENT
  Age: 22 Year
  Sex: Female
  Weight: 61.224 kg

DRUGS (1)
  1. ACETAMINOPHEN-ASPIRIN-CAFFEINE 374 [Suspect]
     Indication: MIGRAINE
     Dosage: 8 TO 10 CAPLETS, ONCE
     Route: 048
     Dates: start: 20101018, end: 20101018

REACTIONS (3)
  - MALAISE [None]
  - OVERDOSE [None]
  - VOMITING [None]
